FAERS Safety Report 5222528-7 (Version None)
Quarter: 2007Q1

REPORT INFORMATION
  Report Type: 
  Country: None (occurrence: None)
  Receive Date: 20070124
  Receipt Date: 20070111
  Transmission Date: 20070707
  Serious: Yes (Hospitalization)
  Sender: FDA-Public Use
  Company Number: 233025

PATIENT
  Age: 86 Year
  Sex: Female

DRUGS (1)
  1. RANIBIZUMAB (RANIBIZUMAB) PWDR + SOLVENT, INJECTION  SOLN [Suspect]
     Indication: MACULAR DEGENERATION
     Dosage: INTRAVITREAL
     Dates: start: 20060306

REACTIONS (5)
  - ABDOMINAL PAIN [None]
  - CONSTIPATION [None]
  - NAUSEA [None]
  - UPPER GASTROINTESTINAL HAEMORRHAGE [None]
  - VOMITING [None]
